FAERS Safety Report 15851703 (Version 1)
Quarter: 2019Q1

REPORT INFORMATION
  Report Type: Report from Study
  Country: NL (occurrence: NL)
  Receive Date: 20190122
  Receipt Date: 20190122
  Transmission Date: 20190417
  Serious: Yes (Other)
  Sender: FDA-Public Use
  Company Number: NL-AUROBINDO-AUR-APL-2013-09209

PATIENT
  Age: 70 Year
  Sex: Female

DRUGS (1)
  1. MIRTAZAPINE FILM-COATED TABLET [Suspect]
     Active Substance: MIRTAZAPINE
     Indication: PRODUCT USED FOR UNKNOWN INDICATION
     Dosage: 15 MILLIGRAM, DAILY, 8 DAYS
     Route: 048

REACTIONS (2)
  - Hyponatraemia [Unknown]
  - Inappropriate antidiuretic hormone secretion [Unknown]
